FAERS Safety Report 6055064-9 (Version None)
Quarter: 2009Q1

REPORT INFORMATION
  Report Type: 
  Country: None (occurrence: None)
  Receive Date: 20090128
  Receipt Date: 20090116
  Transmission Date: 20090719
  Serious: Yes (Hospitalization)
  Sender: FDA-Public Use
  Company Number: CA-ROCHE-606962

PATIENT
  Sex: Male

DRUGS (14)
  1. PEG-INTERFERON ALFA 2A (RO 25-8310) [Suspect]
     Indication: HEPATITIS C
     Route: 058
     Dates: start: 20081030, end: 20081218
  2. PEG-INTERFERON ALFA 2A (RO 25-8310) [Suspect]
     Route: 058
  3. RIBAVIRIN [Suspect]
     Indication: HEPATITIS C
     Route: 048
     Dates: start: 20081030, end: 20081116
  4. RIBAVIRIN [Suspect]
     Route: 048
     Dates: start: 20081117
  5. BLINDED VX-950 [Suspect]
     Indication: HEPATITIS C
     Dosage: DOSE BLINDED.
     Route: 048
     Dates: start: 20081030
  6. GRAVOL TAB [Concomitant]
     Indication: NAUSEA
     Route: 048
  7. TYLENOL [Concomitant]
     Indication: MYALGIA
     Route: 048
  8. ASCORBIC ACID [Concomitant]
     Route: 048
  9. VITAMIN TAB [Concomitant]
     Dosage: VITAMIN D
     Route: 048
  10. VITAMIN TAB [Concomitant]
     Route: 048
  11. VITAMIN E [Concomitant]
     Route: 048
  12. CITALOPRAM HYDROBROMIDE [Concomitant]
     Indication: DEPRESSION
     Route: 048
  13. BUPROPION HCL [Concomitant]
     Indication: DEPRESSION
     Route: 048
  14. DEMEROL [Concomitant]

REACTIONS (1)
  - CONVULSION [None]
